FAERS Safety Report 5037916-1 (Version None)
Quarter: 2006Q2

REPORT INFORMATION
  Report Type: 
  Country: None (occurrence: None)
  Receive Date: 20060613
  Receipt Date: 20060413
  Transmission Date: 20061013
  Serious: Yes (Life-Threatening, Hospitalization)
  Sender: FDA-Public Use
  Company Number: US-JNJFOC-20041007233

PATIENT
  Age: 19 Year
  Sex: Female
  Weight: 52.1637 kg

DRUGS (6)
  1. ORTHO EVRA [Suspect]
     Indication: HEADACHE
     Dosage: 1 DOSE(S), 3 IN 4 WEEK, TRANSDERMAL
     Route: 062
     Dates: start: 20040101, end: 20041004
  2. ORTHO EVRA [Suspect]
     Indication: MENORRHAGIA
     Dosage: 1 DOSE(S), 3 IN 4 WEEK, TRANSDERMAL
     Route: 062
     Dates: start: 20040101, end: 20041004
  3. ORTHO EVRA [Suspect]
     Indication: MENSTRUATION IRREGULAR
     Dosage: 1 DOSE(S), 3 IN 4 WEEK, TRANSDERMAL
     Route: 062
     Dates: start: 20040101, end: 20041004
  4. TOMPAMAX (TOPIRAMATE) CAPLET [Concomitant]
  5. PLAQUENIL [Concomitant]
  6. VALDECOXIB [Concomitant]

REACTIONS (3)
  - HEADACHE [None]
  - PULMONARY EMBOLISM [None]
  - SUPERIOR SAGITTAL SINUS THROMBOSIS [None]
